FAERS Safety Report 20006173 (Version 1)
Quarter: 2021Q4

REPORT INFORMATION
  Report Type: Spontaneous
  Country: US (occurrence: US)
  Receive Date: 20211028
  Receipt Date: 20211028
  Transmission Date: 20220303
  Serious: No
  Sender: FDA-Public Use
  Company Number: US-BAYER-2021A238439

PATIENT
  Age: 57 Year
  Sex: Female
  Weight: 93.88 kg

DRUGS (1)
  1. GADAVIST [Suspect]
     Active Substance: GADOBUTROL
     Indication: Magnetic resonance imaging

REACTIONS (4)
  - Urticaria [None]
  - Pruritus [Recovered/Resolved]
  - Oral pruritus [None]
  - Periorbital swelling [Recovered/Resolved]
